FAERS Safety Report 4781426-3 (Version None)
Quarter: 2005Q3

REPORT INFORMATION
  Report Type: 
  Country: None (occurrence: None)
  Receive Date: 20050927
  Receipt Date: 20050917
  Transmission Date: 20060218
  Serious: Yes (Life-Threatening, Hospitalization)
  Sender: FDA-Public Use
  Company Number: 05H-124-0302520

PATIENT
  Age: 25 Year
  Sex: Female
  Weight: 60 kg

DRUGS (1)
  1. BUPIVACAINE HCL [Suspect]
     Indication: ANAESTHESIA
     Dosage: 1.5 ML, ONCE, INTRATHECAL
     Route: 037
     Dates: start: 20050914, end: 20050914

REACTIONS (8)
  - APHASIA [None]
  - DYSKINESIA [None]
  - EXTRAPYRAMIDAL DISORDER [None]
  - EYE ROLLING [None]
  - LOSS OF CONSCIOUSNESS [None]
  - NEUROSIS [None]
  - NUCHAL RIGIDITY [None]
  - RESTLESSNESS [None]
